FAERS Safety Report 18603376 (Version 3)
Quarter: 2020Q4

REPORT INFORMATION
  Report Type: Spontaneous
  Country: JP (occurrence: JP)
  Receive Date: 20201210
  Receipt Date: 20201227
  Transmission Date: 20210114
  Serious: Yes (Hospitalization, Other)
  Sender: FDA-Public Use
  Company Number: JP-BAXTER-2020BAX024945

PATIENT
  Age: 54 Year
  Sex: Female

DRUGS (48)
  1. RITUXIMAB. [Suspect]
     Active Substance: RITUXIMAB
     Dosage: 2 COURSES OF R-CHASE THERAPY; CYCLICAL
     Route: 065
  2. DOXIL [Suspect]
     Active Substance: DOXORUBICIN HYDROCHLORIDE
     Dosage: NO DRUG GIVEN
     Route: 065
  3. ENDOXAN LYOPHILISAT [Suspect]
     Active Substance: CYCLOPHOSPHAMIDE
     Indication: DIFFUSE LARGE B-CELL LYMPHOMA STAGE IV
     Dosage: 2 COURSES OF R-CHASE THERAPY; CYCLICAL
     Route: 065
  4. ENDOXAN LYOPHILISAT [Suspect]
     Active Substance: CYCLOPHOSPHAMIDE
     Dosage: 1 COURSE OF R-LEED THERAPY; CYCLICAL
     Route: 065
  5. ENDOXAN LYOPHILISAT [Suspect]
     Active Substance: CYCLOPHOSPHAMIDE
     Dosage: 4 COURSES OF R-CHOP THERAPY; CYCLICAL
     Route: 065
  6. PROCARBAZINE [Suspect]
     Active Substance: PROCARBAZINE
     Indication: DIFFUSE LARGE B-CELL LYMPHOMA STAGE IV
     Dosage: 2 COURSES OF R-MPV THERAPY; CYCLICAL
     Route: 065
  7. PROCARBAZINE [Suspect]
     Active Substance: PROCARBAZINE
     Dosage: 2 COURSES OF R-MPV THERAPY; CYCLICAL
     Route: 065
  8. PROCARBAZINE [Suspect]
     Active Substance: PROCARBAZINE
     Dosage: 1 COURSE OF R-CHOEP THERAPY; CYCLICAL
     Route: 065
  9. PREDNISOLONE. [Suspect]
     Active Substance: PREDNISOLONE
     Dosage: 4 COURSES OF R-CHOP THERAPY; CYCLICAL
     Route: 065
  10. PREDNISOLONE. [Suspect]
     Active Substance: PREDNISOLONE
     Dosage: 1 COURSE OF R-CHOEP THERAPY; CYCLICAL
     Route: 065
  11. PREDNISOLONE. [Suspect]
     Active Substance: PREDNISOLONE
     Dosage: 2 COURSES OF R-MPV THERAPY; CYCLICAL
     Route: 065
  12. DEXAMETHASONE. [Suspect]
     Active Substance: DEXAMETHASONE
     Indication: DIFFUSE LARGE B-CELL LYMPHOMA STAGE IV
     Dosage: 2 COURSES OF R-CHASE THERAPY; CYCLICAL
     Route: 065
  13. ENDOXAN LYOPHILISAT [Suspect]
     Active Substance: CYCLOPHOSPHAMIDE
     Dosage: 1 COURSE OF R-CHOEP THERAPY; CYCLICAL
     Route: 065
  14. ENDOXAN LYOPHILISAT [Suspect]
     Active Substance: CYCLOPHOSPHAMIDE
     Dosage: 4 COURSES OF R-CHOP THERAPY; CYCLICAL
     Route: 065
  15. CELLTOP 100 MG/5 ML, SOLUTION INJECTABLE POUR PERFUSION [Suspect]
     Active Substance: ETOPOSIDE
     Indication: DIFFUSE LARGE B-CELL LYMPHOMA STAGE IV
     Dosage: 1 COURSE OF R-CHOEP THERAPY; CYCLICAL
     Route: 065
  16. RITUXIMAB. [Suspect]
     Active Substance: RITUXIMAB
     Dosage: 2 COURSES OF R-MPV THERAPY; CYCLICAL
     Route: 065
  17. VINCRISTINE [Suspect]
     Active Substance: VINCRISTINE
     Dosage: 2 COURSES OF R-MPV THERAPY; CYCLICAL
     Route: 065
  18. PREDNISOLONE. [Suspect]
     Active Substance: PREDNISOLONE
     Dosage: 2 COURSES OF R-CHASE THERAPY; CYCLICAL
     Route: 065
  19. CELLTOP 100 MG/5 ML, SOLUTION INJECTABLE POUR PERFUSION [Suspect]
     Active Substance: ETOPOSIDE
     Dosage: 1 COURSE OF R-LEED THERAPY; CYCLICAL
     Route: 065
  20. RITUXIMAB. [Suspect]
     Active Substance: RITUXIMAB
     Dosage: 1 COURSE OF R-CHOEP THERAPY; CYCLICAL
     Route: 065
  21. RITUXIMAB. [Suspect]
     Active Substance: RITUXIMAB
     Dosage: 2 COURSES OF R-CHASE THERAPY; CYCLICAL
     Route: 065
  22. METHOTREXATE. [Suspect]
     Active Substance: METHOTREXATE
     Indication: DIFFUSE LARGE B-CELL LYMPHOMA STAGE IV
     Dosage: 2 COURSES OF R-MPV THERAPY; CYCLICAL
     Route: 065
  23. CELLTOP 100 MG/5 ML, SOLUTION INJECTABLE POUR PERFUSION [Suspect]
     Active Substance: ETOPOSIDE
     Dosage: 2 COURSES OF R-CHASE THERAPY; CYCLICAL
     Route: 065
  24. RITUXIMAB. [Suspect]
     Active Substance: RITUXIMAB
     Dosage: 1 COURSE OF R-CHOEP THERAPY; CYCLICAL
     Route: 065
  25. PREDNISOLONE. [Suspect]
     Active Substance: PREDNISOLONE
     Dosage: 4 COURSES OF R-CHOP THERAPY; CYCLICAL
     Route: 065
  26. DOXORUBICIN HYDROCHLORIDE. [Suspect]
     Active Substance: DOXORUBICIN HYDROCHLORIDE
     Dosage: 4 COURSES OF R-CHOP THERAPY; CYCLICAL
     Route: 065
  27. ENDOXAN LYOPHILISAT [Suspect]
     Active Substance: CYCLOPHOSPHAMIDE
     Dosage: 1 COURSE OF R-CHOEP THERAPY; CYCLICAL
     Route: 065
  28. CELLTOP 100 MG/5 ML, SOLUTION INJECTABLE POUR PERFUSION [Suspect]
     Active Substance: ETOPOSIDE
     Dosage: 1 COURSE OF R-CHOEP THERAPY; CYCLICAL
     Route: 065
  29. CELLTOP 100 MG/5 ML, SOLUTION INJECTABLE POUR PERFUSION [Suspect]
     Active Substance: ETOPOSIDE
     Dosage: 1 COURSE OF R-LEED THERAPY; CYCLICAL
     Route: 065
  30. RITUXIMAB. [Suspect]
     Active Substance: RITUXIMAB
     Dosage: 4 COURSES OF R-CHOP THERAPY; CYCLICAL
     Route: 065
  31. MELPHALAN. [Suspect]
     Active Substance: MELPHALAN
     Indication: DIFFUSE LARGE B-CELL LYMPHOMA STAGE IV
     Dosage: 1 COURSE OF R-LEED THERAPY; CYCLICAL
     Route: 065
  32. DEXAMETHASONE. [Suspect]
     Active Substance: DEXAMETHASONE
     Dosage: 1 COURSE OF R-LEED THERAPY; CYCLICAL
     Route: 065
  33. DOXORUBICIN HYDROCHLORIDE. [Suspect]
     Active Substance: DOXORUBICIN HYDROCHLORIDE
     Indication: DIFFUSE LARGE B-CELL LYMPHOMA STAGE IV
     Dosage: 1 COURSE OF R-CHOEP THERAPY; CYCLICAL
     Route: 065
  34. DOXIL [Suspect]
     Active Substance: DOXORUBICIN HYDROCHLORIDE
     Indication: DIFFUSE LARGE B-CELL LYMPHOMA STAGE IV
     Dosage: NO DRUG GIVEN
     Route: 065
  35. ENDOXAN LYOPHILISAT [Suspect]
     Active Substance: CYCLOPHOSPHAMIDE
     Dosage: 4 COURSES OF R-CHOP THERAPY; CYCLICAL
     Route: 065
  36. CELLTOP 100 MG/5 ML, SOLUTION INJECTABLE POUR PERFUSION [Suspect]
     Active Substance: ETOPOSIDE
     Dosage: 2 COURSES OF R-CHASE THERAPY; CYCLICAL
     Route: 065
  37. RITUXIMAB. [Suspect]
     Active Substance: RITUXIMAB
     Indication: DIFFUSE LARGE B-CELL LYMPHOMA STAGE IV
     Dosage: 1 COURSE OF R-LEED THERAPY; CYCLICAL
     Route: 065
  38. RITUXIMAB. [Suspect]
     Active Substance: RITUXIMAB
     Dosage: 4 COURSES OF R-CHOP THERAPY; CYCLICAL
     Route: 065
  39. VINCRISTINE [Suspect]
     Active Substance: VINCRISTINE
     Indication: DIFFUSE LARGE B-CELL LYMPHOMA STAGE IV
     Dosage: 1 COURSE OF R-CHOEP THERAPY; CYCLICAL
     Route: 065
  40. VINCRISTINE [Suspect]
     Active Substance: VINCRISTINE
     Dosage: 4 COURSES OF R-CHOP THERAPY; CYCLICAL
     Route: 065
  41. PREDNISOLONE. [Suspect]
     Active Substance: PREDNISOLONE
     Indication: DIFFUSE LARGE B-CELL LYMPHOMA STAGE IV
     Dosage: 1 COURSE OF R-CHOEP THERAPY; CYCLICAL
     Route: 065
  42. PREDNISOLONE. [Suspect]
     Active Substance: PREDNISOLONE
     Dosage: 2 COURSES OF R-MPV THERAPY; CYCLICAL
     Route: 065
  43. METHOTREXATE. [Suspect]
     Active Substance: METHOTREXATE
     Dosage: 1 COURSE OF R-LEED THERAPY; CYCLICAL
     Route: 065
  44. CELLTOP 100 MG/5 ML, SOLUTION INJECTABLE POUR PERFUSION [Suspect]
     Active Substance: ETOPOSIDE
     Dosage: 1 COURSE OF R-CHOEP THERAPY; CYCLICAL
     Route: 065
  45. RITUXIMAB. [Suspect]
     Active Substance: RITUXIMAB
     Dosage: 1 COURSE OF R-LEED THERAPY; CYCLICAL
     Route: 065
  46. RITUXIMAB. [Suspect]
     Active Substance: RITUXIMAB
     Dosage: 2 COURSES OF R-MPV THERAPY; CYCLICAL
     Route: 065
  47. VINCRISTINE [Suspect]
     Active Substance: VINCRISTINE
     Dosage: 2 COURSES OF R-CHASE THERAPY (HIGH-DOSE CYTARABINE); CYCLICAL
     Route: 065
  48. CYTARABINE. [Suspect]
     Active Substance: CYTARABINE
     Indication: DIFFUSE LARGE B-CELL LYMPHOMA STAGE IV
     Dosage: 2 COURSES OF R-CHASE THERAPY (HIGH-DOSE CYTARABINE); CYCLICAL
     Route: 065

REACTIONS (2)
  - Hepatitis [Recovered/Resolved]
  - Hepatitis B reactivation [Recovered/Resolved]
